FAERS Safety Report 19980890 (Version 4)
Quarter: 2024Q3

REPORT INFORMATION
  Report Type: Spontaneous
  Country: IN (occurrence: IN)
  Receive Date: 20211021
  Receipt Date: 20240721
  Transmission Date: 20241017
  Serious: Yes (Other)
  Sender: PFIZER
  Company Number: IN-PFIZER INC-2021666597

PATIENT
  Age: 77 Year
  Sex: Female

DRUGS (4)
  1. PALBOCICLIB [Suspect]
     Active Substance: PALBOCICLIB
     Indication: Breast cancer metastatic
     Dosage: 125 MG, CYCLIC,FOR 21 DAYS IN A MONTH
     Route: 048
     Dates: start: 202104
  2. PALBOCICLIB [Suspect]
     Active Substance: PALBOCICLIB
     Dosage: 125MG DAILY FOR 21 DAYS (OD)
     Route: 048
     Dates: start: 20210503
  3. FULVESTRANT [Concomitant]
     Active Substance: FULVESTRANT
     Dosage: 500 MG, MONTHLY
     Route: 030
     Dates: start: 202104
  4. OSTEOFOS [Concomitant]
     Dosage: 70 MG, WEEKLY FOR 3 MONTHS

REACTIONS (7)
  - Nephrolithiasis [Unknown]
  - Neoplasm progression [Unknown]
  - Pain [Unknown]
  - Haemoglobin decreased [Unknown]
  - Mediastinal mass [Unknown]
  - Pulmonary mass [Unknown]
  - Vertebral column mass [Unknown]

NARRATIVE: CASE EVENT DATE: 20210911
